FAERS Safety Report 24359244 (Version 3)
Quarter: 2024Q4

REPORT INFORMATION
  Report Type: Spontaneous
  Country: US (occurrence: US)
  Receive Date: 20240924
  Receipt Date: 20241022
  Transmission Date: 20250115
  Serious: No
  Sender: SANOFI AVENTIS
  Company Number: US-SA-2024SA267812

PATIENT
  Age: 36 Year
  Sex: Male
  Weight: 115.19 kg

DRUGS (1)
  1. DUPIXENT [Suspect]
     Active Substance: DUPILUMAB
     Indication: Eosinophilic oesophagitis
     Dosage: 300 MG, QW
     Route: 058
     Dates: start: 202311

REACTIONS (18)
  - Increased viscosity of upper respiratory secretion [Unknown]
  - Dyspnoea [Recovering/Resolving]
  - Cough [Unknown]
  - Anxiety [Unknown]
  - COVID-19 [Unknown]
  - Heart rate increased [Unknown]
  - Vital functions abnormal [Unknown]
  - Fatigue [Unknown]
  - Feeling abnormal [Unknown]
  - Dyspepsia [Unknown]
  - Nasal congestion [Unknown]
  - Viral infection [Unknown]
  - Condition aggravated [Unknown]
  - Sinus disorder [Recovering/Resolving]
  - Hypertension [Unknown]
  - Respiratory tract congestion [Unknown]
  - Insomnia [Unknown]
  - Hypersensitivity [Unknown]
